FAERS Safety Report 8394658-2 (Version None)
Quarter: 2012Q2

REPORT INFORMATION
  Report Type: 
  Country: None (occurrence: None)
  Receive Date: 20120530
  Receipt Date: 20120523
  Transmission Date: 20120825
  Serious: Yes (Disabling)
  Sender: FDA-Public Use
  Company Number: FR-PFIZER INC-2012122101

PATIENT
  Age: 21 Year
  Sex: Male
  Weight: 82.6 kg

DRUGS (12)
  1. DEXAMETHASONE [Suspect]
     Indication: ACUTE LYMPHOCYTIC LEUKAEMIA
     Dosage: UNK
     Route: 048
     Dates: start: 20111020, end: 20111127
  2. VALACYCLOVIR HYDROCHLORIDE [Suspect]
     Dosage: 1 G, 1X/DAY
     Route: 048
     Dates: start: 20111013, end: 20111207
  3. CERUBIDINE [Suspect]
     Indication: ACUTE LYMPHOCYTIC LEUKAEMIA
     Dosage: 60 MG, CYCLIC
     Route: 042
     Dates: start: 20111020, end: 20111110
  4. VFEND [Suspect]
     Dosage: UNK
     Route: 042
     Dates: start: 20111017, end: 20111207
  5. PHENOXYMETHYL PENICILLIN [Suspect]
     Dosage: 3 MILLIONIU, 1X/DAY
     Route: 048
     Dates: start: 20111118, end: 20111207
  6. VINCRISTINE [Suspect]
     Indication: ACUTE LYMPHOCYTIC LEUKAEMIA
     Dosage: 2 MG, CYCLIC
     Route: 042
     Dates: start: 20111020, end: 20111110
  7. METHOTREXATE [Concomitant]
     Indication: ACUTE LYMPHOCYTIC LEUKAEMIA
     Dosage: UNK
     Dates: start: 20111026
  8. CYCLOPHOSPHAMIDE [Concomitant]
     Indication: ACUTE LYMPHOCYTIC LEUKAEMIA
     Dosage: UNK
     Dates: start: 20111130
  9. NEXIUM [Suspect]
     Dosage: UNK
     Route: 048
     Dates: start: 20111017, end: 20111111
  10. NEXIUM [Suspect]
     Dosage: UNK
     Route: 048
     Dates: start: 20111115, end: 20111207
  11. CYTARABINE [Concomitant]
     Indication: ACUTE LYMPHOCYTIC LEUKAEMIA
     Dosage: UNK
     Dates: start: 20111130
  12. KIDROLASE [Suspect]
     Indication: ACUTE LYMPHOCYTIC LEUKAEMIA
     Dosage: UNK, CYCLIC
     Route: 042
     Dates: start: 20111024, end: 20111116

REACTIONS (1)
  - TOXIC OPTIC NEUROPATHY [None]
